FAERS Safety Report 17911130 (Version 1)
Quarter: 2020Q2

REPORT INFORMATION
  Report Type: Spontaneous
  Country: US (occurrence: US)
  Receive Date: 20200618
  Receipt Date: 20200618
  Transmission Date: 20200714
  Serious: Yes (Other)
  Sender: FDA-Public Use
  Company Number: US-GILEAD-2020-0473480

PATIENT

DRUGS (1)
  1. TRUVADA [Suspect]
     Active Substance: EMTRICITABINE\TENOFOVIR DISOPROXIL FUMARATE
     Indication: HIV INFECTION
     Dosage: UNK
     Route: 048
     Dates: start: 20170101, end: 20190930

REACTIONS (6)
  - Fracture [Unknown]
  - Osteopenia [Unknown]
  - Tooth loss [Unknown]
  - Osteoporosis [Unknown]
  - Hip arthroplasty [Unknown]
  - Bone density decreased [Unknown]
